FAERS Safety Report 19811281 (Version 1)
Quarter: 2021Q3

REPORT INFORMATION
  Report Type: Spontaneous
  Country: US (occurrence: US)
  Receive Date: 20210910
  Receipt Date: 20210910
  Transmission Date: 20211014
  Serious: No
  Sender: FDA-Public Use
  Company Number: US-ROCHE-2701655

PATIENT
  Sex: Female

DRUGS (3)
  1. PEGASYS [Suspect]
     Active Substance: PEGINTERFERON ALFA-2A
     Indication: PRODUCT USED FOR UNKNOWN INDICATION
     Dosage: THERAPY STATUS : ONGOING : YES, FREQUENCY : OTHER
     Route: 058
     Dates: start: 201907
  2. PEGASYS [Suspect]
     Active Substance: PEGINTERFERON ALFA-2A
  3. PEGASYS [Suspect]
     Active Substance: PEGINTERFERON ALFA-2A

REACTIONS (1)
  - Upper-airway cough syndrome [Unknown]
